FAERS Safety Report 20597919 (Version 1)
Quarter: 2022Q1

REPORT INFORMATION
  Report Type: Spontaneous
  Country: US (occurrence: US)
  Receive Date: 20220315
  Receipt Date: 20220315
  Transmission Date: 20220423
  Serious: No
  Sender: FDA-Public Use
  Company Number: US-PFIZER INC-202101734138

PATIENT
  Age: 51 Year
  Sex: Female

DRUGS (1)
  1. XELJANZ [Suspect]
     Active Substance: TOFACITINIB CITRATE
     Indication: Alopecia
     Dosage: 5 MG, 1X/DAY
     Route: 048
     Dates: start: 2020

REACTIONS (4)
  - Off label use [Unknown]
  - Off label use [Unknown]
  - Product dose omission issue [Unknown]
  - Therapeutic response unexpected [Unknown]
